FAERS Safety Report 24941030 (Version 2)
Quarter: 2025Q2

REPORT INFORMATION
  Report Type: Report from Study
  Country: JP (occurrence: JP)
  Receive Date: 20250207
  Receipt Date: 20250610
  Transmission Date: 20250716
  Serious: Yes (Other)
  Sender: ASTELLAS
  Company Number: JP-ASTELLAS-2025-AER-005909

PATIENT
  Age: 24 Year
  Sex: Female

DRUGS (1)
  1. GILTERITINIB [Suspect]
     Active Substance: GILTERITINIB
     Indication: Acute myeloid leukaemia recurrent
     Route: 065

REACTIONS (3)
  - Myelosuppression [Unknown]
  - Febrile neutropenia [Unknown]
  - Liver disorder [Unknown]
